FAERS Safety Report 15672785 (Version 1)
Quarter: 2018Q4

REPORT INFORMATION
  Report Type: Report from Study
  Country: US (occurrence: US)
  Receive Date: 20181129
  Receipt Date: 20181129
  Transmission Date: 20190205
  Serious: No
  Sender: FDA-Public Use
  Company Number: US-TESARO-US-2018TSO02250

PATIENT
  Age: 62 Year
  Sex: Female

DRUGS (3)
  1. ZEJULA [Suspect]
     Active Substance: NIRAPARIB
     Dosage: 200 MG, QD
     Route: 048
     Dates: start: 20180504, end: 20180606
  2. ZEJULA [Suspect]
     Active Substance: NIRAPARIB
     Indication: OVARIAN CANCER
     Dosage: 100 MG, QD
     Route: 048
     Dates: start: 20180417, end: 20180504
  3. ZEJULA [Suspect]
     Active Substance: NIRAPARIB
     Dosage: 100 MG, QOD (AM WITH FOOD)
     Route: 048
     Dates: start: 20180712

REACTIONS (22)
  - Contusion [Not Recovered/Not Resolved]
  - Sinus operation [Not Recovered/Not Resolved]
  - Rhinorrhoea [Not Recovered/Not Resolved]
  - Fatigue [Not Recovered/Not Resolved]
  - Headache [Not Recovered/Not Resolved]
  - White blood cell count decreased [Unknown]
  - Nausea [Not Recovered/Not Resolved]
  - Anxiety [Unknown]
  - Palpitations [Not Recovered/Not Resolved]
  - Dysgeusia [Recovering/Resolving]
  - Throat irritation [Not Recovered/Not Resolved]
  - Insomnia [Unknown]
  - Constipation [Unknown]
  - Defaecation urgency [Not Recovered/Not Resolved]
  - Emotional distress [Not Recovered/Not Resolved]
  - Dyspepsia [Unknown]
  - Rash [Unknown]
  - Hypersensitivity [Unknown]
  - Back pain [Unknown]
  - Neutrophil count decreased [Not Recovered/Not Resolved]
  - Abdominal pain [Not Recovered/Not Resolved]
  - Weight decreased [Unknown]

NARRATIVE: CASE EVENT DATE: 20180504
